FAERS Safety Report 4623174-6 (Version None)
Quarter: 2005Q1

REPORT INFORMATION
  Report Type: 
  Country: None (occurrence: None)
  Receive Date: 20050330
  Receipt Date: 20050317
  Transmission Date: 20050727
  Serious: Yes (Hospitalization)
  Sender: FDA-Public Use
  Company Number: PHEH2005US03292

PATIENT
  Sex: Female

DRUGS (1)
  1. TOFRANIL-PM [Suspect]
     Indication: DEPRESSION
     Dosage: 75 MG, QD
     Dates: start: 20050201

REACTIONS (2)
  - ELECTROLYTE IMBALANCE [None]
  - FAECALOMA [None]
